FAERS Safety Report 5297818-2 (Version None)
Quarter: 2007Q1

REPORT INFORMATION
  Report Type: 
  Country: None (occurrence: None)
  Receive Date: 20070201
  Receipt Date: 20061024
  Transmission Date: 20070707
  Serious: No
  Sender: FDA-Public Use
  Company Number: 2006PV023864

PATIENT
  Age: 69 Year
  Sex: Female
  Weight: 57.1532 kg

DRUGS (4)
  1. BYETTA [Suspect]
     Indication: DIABETES MELLITUS NON-INSULIN-DEPENDENT
     Dosage: SEE IMAGE
     Route: 058
     Dates: start: 20060915, end: 20061001
  2. BYETTA [Suspect]
     Indication: DIABETES MELLITUS NON-INSULIN-DEPENDENT
     Dosage: SEE IMAGE
     Route: 058
     Dates: start: 20061001, end: 20061001
  3. BYETTA [Suspect]
     Indication: DIABETES MELLITUS NON-INSULIN-DEPENDENT
     Dosage: SEE IMAGE
     Route: 058
     Dates: start: 20061001
  4. WELLBUTRIN [Concomitant]

REACTIONS (8)
  - CONSTIPATION [None]
  - DEPRESSION [None]
  - FAMILY STRESS [None]
  - LETHARGY [None]
  - NAUSEA [None]
  - PAINFUL DEFAECATION [None]
  - SOMNOLENCE [None]
  - STRESS [None]
